FAERS Safety Report 16700873 (Version 1)
Quarter: 2019Q3

REPORT INFORMATION
  Report Type: Spontaneous
  Country: FR (occurrence: FR)
  Receive Date: 20190814
  Receipt Date: 20190814
  Transmission Date: 20191004
  Serious: Yes (Hospitalization)
  Sender: FDA-Public Use
  Company Number: FR-AUROBINDO-AUR-APL-2019-052950

PATIENT

DRUGS (9)
  1. NIMBEX [Suspect]
     Active Substance: CISATRACURIUM BESYLATE
     Indication: ANAESTHESIA
     Dosage: 10 MILLIGRAM, 1 TOTAL
     Route: 042
     Dates: start: 20181112, end: 20181112
  2. NEFOPAM HYDROCHLORIDE [Suspect]
     Active Substance: NEFOPAM HYDROCHLORIDE
     Indication: PAIN
     Dosage: 20 MILLIGRAM, 1 TOTAL
     Route: 042
     Dates: start: 20181112, end: 20181112
  3. GENTAMICINE [Suspect]
     Active Substance: GENTAMICIN
     Indication: ANTIBIOTIC PROPHYLAXIS
     Dosage: 400 MILLIGRAM, 1 TOTAL
     Route: 042
     Dates: start: 20181112, end: 20181112
  4. PROPOFOL. [Suspect]
     Active Substance: PROPOFOL
     Indication: ANAESTHESIA
     Dosage: 300 MILLIGRAM, 1 TOTAL
     Route: 042
     Dates: start: 20181112, end: 20181112
  5. SUFENTANIL [Suspect]
     Active Substance: SUFENTANIL
     Indication: ANAESTHESIA
     Dosage: 25 MICROGRAM, 1 TOTAL
     Route: 042
     Dates: start: 20181112, end: 20181112
  6. CONTRAMAL [Suspect]
     Active Substance: TRAMADOL HYDROCHLORIDE
     Indication: PAIN
     Dosage: 100 MILLIGRAM, 1 TOTAL
     Route: 042
     Dates: start: 20181112, end: 20181112
  7. CLINDAMYCIN HYDROCHLORIDE. [Suspect]
     Active Substance: CLINDAMYCIN HYDROCHLORIDE
     Indication: ANTIBIOTIC PROPHYLAXIS
     Dosage: 600 MILLIGRAM, 1 TOTAL
     Route: 042
     Dates: start: 20181112, end: 20181112
  8. PHLOROGLUCINOL DIHYDRATE [Suspect]
     Active Substance: PHLOROGLUCINOL DIHYDRATE
     Indication: PAIN
     Dosage: 80 MILLIGRAM, 1 TOTAL
     Route: 042
     Dates: start: 20181112, end: 20181112
  9. PARACETAMOL [Suspect]
     Active Substance: ACETAMINOPHEN
     Indication: PAIN
     Dosage: 1 GRAM, 1 TOTAL
     Route: 042
     Dates: start: 20181112, end: 20181112

REACTIONS (1)
  - Urticaria [Recovered/Resolved]

NARRATIVE: CASE EVENT DATE: 20181112
